FAERS Safety Report 7469085-2 (Version None)
Quarter: 2011Q2

REPORT INFORMATION
  Report Type: 
  Country: None (occurrence: None)
  Receive Date: 20110510
  Receipt Date: 20110425
  Transmission Date: 20111010
  Serious: No
  Sender: FDA-Public Use
  Company Number: US-B.I. PHARMACEUTICALS,INC./RIDGEFIELD-2011-BP-11660BP

PATIENT
  Age: 75 Year
  Sex: Male

DRUGS (4)
  1. FLOMAX [Suspect]
     Indication: URINARY RETENTION
     Dosage: 0.4 MG
     Route: 048
     Dates: start: 20110125
  2. FINASTERIDE [Suspect]
     Indication: BENIGN PROSTATIC HYPERPLASIA
  3. FLOMAX [Suspect]
     Indication: BENIGN PROSTATIC HYPERPLASIA
  4. FINASTERIDE [Suspect]
     Indication: URINARY RETENTION
     Dates: start: 20110125

REACTIONS (4)
  - DRUG INEFFECTIVE [None]
  - ERECTILE DYSFUNCTION [None]
  - ABDOMINAL PAIN [None]
  - PENIS DISORDER [None]
